FAERS Safety Report 7286148-5 (Version None)
Quarter: 2011Q1

REPORT INFORMATION
  Report Type: 
  Country: None (occurrence: None)
  Receive Date: 20110210
  Receipt Date: 20110128
  Transmission Date: 20110831
  Serious: Yes (Other)
  Sender: FDA-Public Use
  Company Number: US-CELGENEUS-163-21880-11020243

PATIENT
  Age: 63 Year
  Sex: Male

DRUGS (4)
  1. DEXAMETHASONE [Suspect]
     Indication: MULTIPLE MYELOMA
     Route: 065
  2. MELPHALAN [Suspect]
     Indication: MULTIPLE MYELOMA
     Route: 065
  3. THALOMID [Suspect]
     Indication: MULTIPLE MYELOMA
     Route: 048
  4. CC-5013 [Suspect]
     Indication: MULTIPLE MYELOMA
     Route: 048

REACTIONS (1)
  - ACUTE MYELOID LEUKAEMIA [None]
